FAERS Safety Report 5811260-4 (Version None)
Quarter: 2008Q3

REPORT INFORMATION
  Report Type: 
  Country: None (occurrence: None)
  Receive Date: 20080710
  Receipt Date: 20080625
  Transmission Date: 20090109
  Serious: Yes (Other)
  Sender: FDA-Public Use
  Company Number: TPH-00062

PATIENT
  Age: 28 Year
  Sex: Female

DRUGS (2)
  1. TRIQUILAR [Suspect]
     Indication: ORAL CONTRACEPTION
     Dosage: ORAL
     Route: 048
     Dates: start: 20050101, end: 20070617
  2. COPPER T [Concomitant]

REACTIONS (7)
  - ABORTION SPONTANEOUS [None]
  - DRUG EXPOSURE DURING PREGNANCY [None]
  - ECTOPIC PREGNANCY [None]
  - INCREASED APPETITE [None]
  - OFF LABEL USE [None]
  - PREGNANCY ON ORAL CONTRACEPTIVE [None]
  - WEIGHT INCREASED [None]
